FAERS Safety Report 4413225-6 (Version None)
Quarter: 2004Q3

REPORT INFORMATION
  Report Type: 
  Country: None (occurrence: None)
  Receive Date: 20040714
  Receipt Date: 20040714
  Transmission Date: 20050211
  Serious: No
  Sender: FDA-Public Use
  Company Number: None

PATIENT
  Age: 25 Year
  Sex: Male

DRUGS (1)
  1. METHOTREXATE [Suspect]
     Indication: LEUKAEMIA
     Dosage: 1496 MG/24 HOURS IV
     Route: 042

REACTIONS (5)
  - DRUG TOXICITY [None]
  - IATROGENIC INJURY [None]
  - LEUKOPENIA [None]
  - MEDICATION ERROR [None]
  - NEPHROPATHY TOXIC [None]
